FAERS Safety Report 13552406 (Version 1)
Quarter: 2017Q2

REPORT INFORMATION
  Report Type: Spontaneous
  Country: CN (occurrence: CN)
  Receive Date: 20170517
  Receipt Date: 20170517
  Transmission Date: 20170830
  Serious: Yes (Hospitalization)
  Sender: FDA-Public Use
  Company Number: CN-BAXTER-2017BAX020366

PATIENT
  Age: 40 Year
  Sex: Male
  Weight: 70 kg

DRUGS (5)
  1. DEXAMETHASONE SODIUM PHOSPHATE. [Suspect]
     Active Substance: DEXAMETHASONE SODIUM PHOSPHATE
     Indication: INFECTION
     Route: 041
     Dates: start: 20170131, end: 20170131
  2. KAISHI [Suspect]
     Active Substance: ALPROSTADIL
     Indication: CARDIOVASCULAR DISORDER
     Route: 041
     Dates: start: 20170131, end: 20170131
  3. 0.9% SODIUM CHLORIDE INJECTION [Suspect]
     Active Substance: SODIUM CHLORIDE
     Indication: MEDICATION DILUTION
     Route: 041
     Dates: start: 20170131, end: 20170131
  4. 5% GLUCOSE  INJECTION [Suspect]
     Active Substance: DEXTROSE
     Indication: PRODUCT USED FOR UNKNOWN INDICATION
     Route: 065
  5. GANCICLOVIR. [Suspect]
     Active Substance: GANCICLOVIR
     Indication: VIRAL INFECTION
     Route: 041
     Dates: start: 20170131, end: 20170131

REACTIONS (7)
  - Hypokalaemia [Recovering/Resolving]
  - Blood potassium decreased [Unknown]
  - Fall [Unknown]
  - Vestibular neuronitis [Unknown]
  - Disease recurrence [Unknown]
  - Muscular weakness [Unknown]
  - Muscular weakness [Unknown]

NARRATIVE: CASE EVENT DATE: 20170131
